FAERS Safety Report 10584498 (Version 1)
Quarter: 2014Q4

REPORT INFORMATION
  Report Type: Spontaneous
  Country: US (occurrence: None)
  Receive Date: 20141113
  Receipt Date: 20141113
  Transmission Date: 20150529
  Serious: Yes (Other)
  Sender: FDA-Public Use
  Company Number: None

PATIENT
  Age: 58 Year
  Sex: Female
  Weight: 56.7 kg

DRUGS (1)
  1. AMANTADINE HYDROCHLORIDE. [Suspect]
     Active Substance: AMANTADINE HYDROCHLORIDE
     Indication: PARKINSONIAN REST TREMOR
     Dosage: 10 ML THREE TIMES DAILY TAKEN BY MOUTH
     Route: 048
     Dates: start: 20141018, end: 20141111

REACTIONS (8)
  - Facial pain [None]
  - Unevaluable event [None]
  - Abdominal pain upper [None]
  - Heart rate increased [None]
  - Headache [None]
  - Insomnia [None]
  - Dry mouth [None]
  - Pain in jaw [None]

NARRATIVE: CASE EVENT DATE: 20141105
